FAERS Safety Report 8814471 (Version 3)
Quarter: 2012Q4

REPORT INFORMATION
  Report Type: 
  Country: FR (occurrence: FR)
  Receive Date: 20120928
  Receipt Date: 20121119
  Transmission Date: 20130627
  Serious: Yes (Hospitalization, Other)
  Sender: FDA-Public Use
  Company Number: FR-ASTELLAS-2012US008127

PATIENT
  Sex: Male

DRUGS (1)
  1. TARCEVA [Suspect]
     Indication: LUNG NEOPLASM MALIGNANT
     Dosage: 150 mg, UID/QD
     Route: 048
     Dates: start: 20120623, end: 20120923

REACTIONS (5)
  - Retinal tear [Recovered/Resolved]
  - Retinal detachment [Recovered/Resolved]
  - Visual impairment [Unknown]
  - Rash [Recovered/Resolved]
  - Paronychia [Recovering/Resolving]
